FAERS Safety Report 11785201 (Version 1)
Quarter: 2015Q4

REPORT INFORMATION
  Report Type: Spontaneous
  Country: US (occurrence: None)
  Receive Date: 20151125
  Receipt Date: 20151125
  Transmission Date: 20160305
  Serious: No
  Sender: FDA-Public Use
  Company Number: None

PATIENT
  Age: 2 Day
  Sex: Male

DRUGS (1)
  1. LIDOCAINE AND PRILOCAINE [Suspect]
     Active Substance: LIDOCAINE\PRILOCAINE
     Indication: CIRCUMCISION
     Route: 061

REACTIONS (3)
  - Application site erythema [None]
  - Application site vesicles [None]
  - Application site swelling [None]

NARRATIVE: CASE EVENT DATE: 20151116
